FAERS Safety Report 21938051 (Version 3)
Quarter: 2024Q4

REPORT INFORMATION
  Report Type: Report from Study
  Country: US (occurrence: US)
  Receive Date: 20230201
  Receipt Date: 20241003
  Transmission Date: 20250114
  Serious: Yes (Other)
  Sender: NOVARTIS
  Company Number: US-002147023-NVSC2023US020344

PATIENT
  Sex: Female

DRUGS (2)
  1. ENTRESTO [Suspect]
     Active Substance: SACUBITRIL\VALSARTAN
     Indication: Cardiac failure
     Dosage: 49 MG OF SACUBITRIL AND 51 MG OF VALSARTAN, BID
     Route: 048
  2. ENTRESTO [Suspect]
     Active Substance: SACUBITRIL\VALSARTAN
     Dosage: 24 MG OF SACUBITRIL AND 26 MG OF VALSARTAN, BID
     Route: 065

REACTIONS (6)
  - Hypotension [Unknown]
  - Headache [Unknown]
  - Cardiac disorder [Unknown]
  - Fatigue [Unknown]
  - Arthralgia [Unknown]
  - Wrong technique in product usage process [Unknown]
